FAERS Safety Report 18039789 (Version 2)
Quarter: 2020Q3

REPORT INFORMATION
  Report Type: Spontaneous
  Country: RU (occurrence: RU)
  Receive Date: 20200717
  Receipt Date: 20200728
  Transmission Date: 20201103
  Serious: Yes (Other)
  Sender: FDA-Public Use
  Company Number: RU-AMERICAN REGENT INC-2020001407

PATIENT
  Age: 0 Year
  Sex: Male
  Weight: 3.1 kg

DRUGS (5)
  1. VENOFER [Suspect]
     Active Substance: IRON SUCROSE
     Indication: PRODUCT USED FOR UNKNOWN INDICATION
     Dosage: UNK
     Route: 064
     Dates: start: 2019
  2. NIFEDIPINE. [Suspect]
     Active Substance: NIFEDIPINE
     Indication: PRODUCT USED FOR UNKNOWN INDICATION
     Dosage: UNK
     Route: 064
     Dates: start: 2019
  3. FERRUM HAUSMANN                    /00023505/ [Suspect]
     Active Substance: FERROUS FUMARATE
     Indication: PRODUCT USED FOR UNKNOWN INDICATION
     Dosage: UNK
     Route: 064
     Dates: start: 2019
  4. FERINJECT [Suspect]
     Active Substance: FERRIC CARBOXYMALTOSE
     Indication: PRODUCT USED FOR UNKNOWN INDICATION
     Dosage: UNK
     Route: 064
     Dates: start: 2019
  5. MALTOFER                           /00023548/ [Suspect]
     Active Substance: IRON POLYMALTOSE
     Indication: PRODUCT USED FOR UNKNOWN INDICATION
     Dosage: UNK
     Route: 064
     Dates: start: 2019

REACTIONS (12)
  - Ischaemia [Unknown]
  - Jaundice neonatal [Unknown]
  - Hypotonia [Unknown]
  - Foetal exposure during pregnancy [Unknown]
  - Respiratory distress [Unknown]
  - Congenital pneumonia [Unknown]
  - Depressed level of consciousness [Not Recovered/Not Resolved]
  - Hypoxic-ischaemic encephalopathy [Unknown]
  - Premature baby [Unknown]
  - Cerebral ventricle dilatation [Unknown]
  - Maternal condition affecting foetus [Unknown]
  - Reflexes abnormal [Unknown]

NARRATIVE: CASE EVENT DATE: 2019
